FAERS Safety Report 15956746 (Version 1)
Quarter: 2019Q1

REPORT INFORMATION
  Report Type: Spontaneous
  Country: US (occurrence: US)
  Receive Date: 20190201
  Receipt Date: 20190201
  Transmission Date: 20190417
  Serious: Yes (Life-Threatening, Hospitalization)
  Sender: FDA-Public Use
  Company Number: None

PATIENT
  Age: 54 Year
  Sex: Male

DRUGS (2)
  1. VIVAZEN BOTANICALS MAENG DA KRATOM [Suspect]
     Active Substance: HERBALS\MITRAGYNINE
     Indication: BACK PAIN
  2. VIVAZEN BOTANICALS MAENG DA KRATOM [Suspect]
     Active Substance: HERBALS\MITRAGYNINE
     Indication: DRUG DEPENDENCE

REACTIONS (6)
  - Mental status changes [None]
  - Vomiting [None]
  - Headache [None]
  - Cerebral haemorrhage [None]
  - Brain midline shift [None]
  - Disorientation [None]

NARRATIVE: CASE EVENT DATE: 20190124
